FAERS Safety Report 13252613 (Version 6)
Quarter: 2017Q3

REPORT INFORMATION
  Report Type: Report from Study
  Country: FR (occurrence: FR)
  Receive Date: 20170220
  Receipt Date: 20170727
  Transmission Date: 20171127
  Serious: Yes (Death, Hospitalization, Other)
  Sender: FDA-Public Use
  Company Number: FR-ASTRAZENECA-2017SE18488

PATIENT
  Age: 23815 Day
  Sex: Female
  Weight: 52 kg

DRUGS (13)
  1. FASLODEX [Suspect]
     Active Substance: FULVESTRANT
     Indication: BREAST CANCER METASTATIC
     Route: 030
     Dates: start: 201405
  2. AFINITOR [Concomitant]
     Active Substance: EVEROLIMUS
     Dates: start: 201512
  3. FASLODEX [Suspect]
     Active Substance: FULVESTRANT
     Indication: BREAST CANCER METASTATIC
     Dosage: 500 MG, 1 INJECTION EVERY 4 WEEKS
     Route: 030
     Dates: start: 20161012, end: 20170126
  4. PALBOCICLIB [Suspect]
     Active Substance: PALBOCICLIB
     Indication: BREAST CANCER METASTATIC
     Route: 048
     Dates: start: 20161012, end: 20170124
  5. EXEMESTANE. [Concomitant]
     Active Substance: EXEMESTANE
     Dates: start: 201512
  6. FASLODEX [Suspect]
     Active Substance: FULVESTRANT
     Indication: BREAST CANCER METASTATIC
     Route: 030
     Dates: start: 20170126, end: 20170126
  7. PALBOCICLIB [Suspect]
     Active Substance: PALBOCICLIB
     Indication: BREAST CANCER METASTATIC
     Route: 048
     Dates: start: 20170126, end: 20170126
  8. AVASTIN [Concomitant]
     Active Substance: BEVACIZUMAB
     Dates: start: 20130916, end: 20131224
  9. PALBOCICLIB [Suspect]
     Active Substance: PALBOCICLIB
     Indication: BREAST CANCER METASTATIC
     Route: 048
     Dates: start: 20161113
  10. TAXOL [Concomitant]
     Active Substance: PACLITAXEL
     Dates: start: 20130916
  11. CORTANCYL [Concomitant]
     Active Substance: PREDNISONE
  12. FEMARA [Concomitant]
     Active Substance: LETROZOLE
     Dates: start: 20130213
  13. PALBOCICLIB [Suspect]
     Active Substance: PALBOCICLIB
     Indication: BREAST CANCER METASTATIC
     Route: 048
     Dates: start: 20170109, end: 20170124

REACTIONS (12)
  - Gastric ulcer haemorrhage [Fatal]
  - Neutropenia [Recovered/Resolved]
  - Off label use [Unknown]
  - Haematemesis [Fatal]
  - General physical health deterioration [Unknown]
  - Nausea [Unknown]
  - Acute coronary syndrome [Unknown]
  - Ascites [Unknown]
  - Aspartate aminotransferase increased [Unknown]
  - Gastric ulcer [Fatal]
  - Vomiting [Unknown]
  - Alanine aminotransferase increased [Unknown]

NARRATIVE: CASE EVENT DATE: 20161230
